FAERS Safety Report 5429392-1 (Version None)
Quarter: 2007Q3

REPORT INFORMATION
  Report Type: 
  Country: None (occurrence: None)
  Receive Date: 20070829
  Receipt Date: 20070829
  Transmission Date: 20080115
  Serious: Yes (Other)
  Sender: FDA-Public Use
  Company Number: A0676933A

PATIENT
  Age: 38 Year
  Sex: Female

DRUGS (3)
  1. TUMS E-X TABLETS, ASSORTED BERRIES [Suspect]
     Route: 048
  2. FLEXERIL [Concomitant]
  3. MULTIVITAMIN [Concomitant]

REACTIONS (2)
  - ANOREXIA [None]
  - DEPENDENCE [None]
